FAERS Safety Report 8592833-5 (Version None)
Quarter: 2012Q3

REPORT INFORMATION
  Report Type: 
  Country: None (occurrence: None)
  Receive Date: 20120814
  Receipt Date: 20120806
  Transmission Date: 20120928
  Serious: Yes (Death)
  Sender: FDA-Public Use
  Company Number: AU-ROCHE-1079195

PATIENT
  Sex: Female
  Weight: 92.4 kg

DRUGS (2)
  1. ZELBORAF [Suspect]
     Indication: METASTATIC MALIGNANT MELANOMA
     Route: 048
     Dates: start: 20110730, end: 20110826
  2. ACETAMINOPHEN [Concomitant]
     Indication: ARTHRALGIA
     Dosage: AS REQUIRED
     Route: 048

REACTIONS (1)
  - DISEASE PROGRESSION [None]
